FAERS Safety Report 5833769-X (Version None)
Quarter: 2008Q3

REPORT INFORMATION
  Report Type: 
  Country: None (occurrence: None)
  Receive Date: 20080804
  Receipt Date: 20080804
  Transmission Date: 20090109
  Serious: Yes (Death, Hospitalization)
  Sender: FDA-Public Use
  Company Number: None

PATIENT
  Sex: Male
  Weight: 16.4 kg

DRUGS (2)
  1. CYTARABINE [Suspect]
     Dosage: 15360 MG
     Dates: end: 20080711
  2. PEG-L-ASPARAGINASE (K-H) [Suspect]
     Dosage: 1600 UNIT
     Dates: end: 20080711

REACTIONS (3)
  - CARDIAC ARREST [None]
  - OXYGEN SATURATION DECREASED [None]
  - RESPIRATORY DISTRESS [None]
